FAERS Safety Report 14508700 (Version 6)
Quarter: 2018Q2

REPORT INFORMATION
  Report Type: Report from Study
  Country: CA (occurrence: CA)
  Receive Date: 20180209
  Receipt Date: 20180413
  Transmission Date: 20180711
  Serious: Yes (Life-Threatening, Hospitalization, Other)
  Sender: FDA-Public Use
  Company Number: CA-AMGEN-CANSL2018003207

PATIENT
  Age: 40 Year
  Sex: Male
  Weight: 75 kg

DRUGS (4)
  1. VECTIBIX [Suspect]
     Active Substance: PANITUMUMAB
     Dosage: 451 MG, Q2WK (100MG/5ML VIAL)
     Route: 042
  2. ZELBORAF [Concomitant]
     Active Substance: VEMURAFENIB
     Dosage: 960 MG, BID
     Route: 048
     Dates: start: 20171228
  3. VECTIBIX [Suspect]
     Active Substance: PANITUMUMAB
     Indication: COLORECTAL CANCER METASTATIC
     Dosage: 480 MG, Q2WK (100MG/5ML VIAL)
     Route: 042
     Dates: start: 20171027, end: 2018
  4. VECTIBIX [Suspect]
     Active Substance: PANITUMUMAB
     Dosage: 480 MG, Q2WK (100MG/5ML VIAL)
     Route: 042
     Dates: start: 2018

REACTIONS (17)
  - Dyspepsia [Not Recovered/Not Resolved]
  - Pancreatitis [Recovered/Resolved]
  - Pulmonary embolism [Recovering/Resolving]
  - Appetite disorder [Not Recovered/Not Resolved]
  - Diarrhoea [Not Recovered/Not Resolved]
  - Feeling abnormal [Not Recovered/Not Resolved]
  - Fatigue [Not Recovered/Not Resolved]
  - Oral pain [Not Recovered/Not Resolved]
  - Pain [Not Recovered/Not Resolved]
  - Somnolence [Not Recovered/Not Resolved]
  - Nausea [Recovered/Resolved]
  - Rash [Not Recovered/Not Resolved]
  - Dyspnoea [Not Recovered/Not Resolved]
  - Dry mouth [Recovered/Resolved]
  - Depressed mood [Recovered/Resolved]
  - Anxiety [Recovered/Resolved]
  - Mucosal inflammation [Not Recovered/Not Resolved]

NARRATIVE: CASE EVENT DATE: 20171027
